FAERS Safety Report 11322798 (Version 1)
Quarter: 2015Q3

REPORT INFORMATION
  Report Type: Spontaneous
  Country: US (occurrence: None)
  Receive Date: 20150729
  Receipt Date: 20150729
  Transmission Date: 20151125
  Serious: Yes (Other)
  Sender: FDA-Public Use
  Company Number: None

PATIENT
  Age: 2 Year
  Sex: Female

DRUGS (1)
  1. ARIPIPRAZOLE. [Suspect]
     Active Substance: ARIPIPRAZOLE
     Dosage: 1 DAILY (20 TABS LEFT IN VIAL) QD ORAL
     Route: 048
     Dates: start: 20150520, end: 20150603

REACTIONS (7)
  - Somnolence [None]
  - Lethargy [None]
  - Seizure [None]
  - Activities of daily living impaired [None]
  - Accidental exposure to product by child [None]
  - Decreased appetite [None]
  - Product closure issue [None]

NARRATIVE: CASE EVENT DATE: 20150603
